FAERS Safety Report 15594844 (Version 2)
Quarter: 2018Q4

REPORT INFORMATION
  Report Type: Spontaneous
  Country: US (occurrence: US)
  Receive Date: 20181106
  Receipt Date: 20181213
  Transmission Date: 20190205
  Serious: No
  Sender: FDA-Public Use
  Company Number: US-SA-2018SA303012

PATIENT
  Age: 64 Year
  Sex: Female

DRUGS (1)
  1. ICY HOT MEDICATED [Suspect]
     Active Substance: MENTHOL
     Dosage: UNK, UNK

REACTIONS (1)
  - Drug ineffective [Unknown]

NARRATIVE: CASE EVENT DATE: 20181029
